FAERS Safety Report 7382426-X (Version None)
Quarter: 2011Q1

REPORT INFORMATION
  Report Type: 
  Country: None (occurrence: None)
  Receive Date: 20110329
  Receipt Date: 20110310
  Transmission Date: 20110831
  Serious: Yes (Other)
  Sender: FDA-Public Use
  Company Number: US-BAYER-2011-026650

PATIENT
  Sex: Female
  Weight: 70.295 kg

DRUGS (5)
  1. ACIPHEX [Concomitant]
     Indication: REFLUX OESOPHAGITIS
     Dosage: UNK
     Dates: start: 20020101
  2. EFFEXOR [Concomitant]
     Indication: ANXIETY
  3. SYNTHROID [Concomitant]
     Indication: THYROID HORMONE REPLACEMENT THERAPY
     Dosage: UNK UNK, QD
     Dates: start: 19980101
  4. YASMIN [Suspect]
  5. EFFEXOR [Concomitant]
     Indication: DEPRESSION
     Dosage: UNK
     Dates: start: 20040101

REACTIONS (3)
  - CHOLECYSTECTOMY [None]
  - ANXIETY [None]
  - DEPRESSION [None]
